FAERS Safety Report 20756403 (Version 1)
Quarter: 2022Q2

REPORT INFORMATION
  Report Type: Report from Study
  Country: ES (occurrence: ES)
  Receive Date: 20220427
  Receipt Date: 20220427
  Transmission Date: 20220721
  Serious: Yes (Hospitalization)
  Sender: FDA-Public Use
  Company Number: None

PATIENT
  Age: 74 Year
  Sex: Female

DRUGS (5)
  1. NAPROXEN [Suspect]
     Active Substance: NAPROXEN
     Dosage: 1 COMPRIMIDO CADA 12 HORAS
     Route: 048
     Dates: start: 20211029, end: 20211104
  2. LEVOTHYROXINE SODIUM [Concomitant]
     Active Substance: LEVOTHYROXINE SODIUM
     Indication: Hypothyroidism
     Dosage: 1 COMPRIMIDO CADA 24 HORAS
     Route: 048
     Dates: start: 201906
  3. VENLAFAXINE HYDROCHLORIDE [Concomitant]
     Active Substance: VENLAFAXINE HYDROCHLORIDE
     Dosage: 1 C?PSULA AL D?A
     Route: 048
     Dates: start: 202002
  4. PANTOPRAZOLE [Concomitant]
     Active Substance: PANTOPRAZOLE
     Dosage: 1 COMPRIMIDO CADA 24 HORAS
     Route: 048
     Dates: start: 202103
  5. CALCIO CARBONATO [Concomitant]
     Dosage: 1 COMPRIMIDO CADA 24 HORAS
     Route: 048
     Dates: start: 201908, end: 202202

REACTIONS (2)
  - Gastric ulcer [Unknown]
  - Erosive duodenitis [Unknown]

NARRATIVE: CASE EVENT DATE: 20211103
